FAERS Safety Report 5673333-9 (Version None)
Quarter: 2008Q1

REPORT INFORMATION
  Report Type: 
  Country: None (occurrence: None)
  Receive Date: 20080319
  Receipt Date: 20080307
  Transmission Date: 20080703
  Serious: Yes (Other)
  Sender: FDA-Public Use
  Company Number: BR-ROCHE-552492

PATIENT
  Age: 24 Year
  Sex: Female
  Weight: 60 kg

DRUGS (3)
  1. ROACUTAN [Suspect]
     Indication: ACNE
     Route: 048
     Dates: start: 20070201, end: 20070501
  2. ROACUTAN [Suspect]
     Route: 048
  3. TYLENOL (CAPLET) [Concomitant]
     Indication: HEADACHE
     Dosage: RECEIVED OCCASIONALLY

REACTIONS (2)
  - ABORTION SPONTANEOUS [None]
  - PREMATURE SEPARATION OF PLACENTA [None]
